FAERS Safety Report 8202875-7 (Version None)
Quarter: 2012Q1

REPORT INFORMATION
  Report Type: 
  Country: None (occurrence: None)
  Receive Date: 20120312
  Receipt Date: 20120312
  Transmission Date: 20120608
  Serious: Yes (Other)
  Sender: FDA-Public Use
  Company Number: None

PATIENT
  Sex: Female
  Weight: 62.595 kg

DRUGS (1)
  1. ALENDRONATE SODIUM [Suspect]
     Indication: BONE DISORDER
     Route: 048
     Dates: start: 20110101, end: 20120301

REACTIONS (4)
  - BONE PAIN [None]
  - ABASIA [None]
  - ARTHRALGIA [None]
  - PAIN IN EXTREMITY [None]
